FAERS Safety Report 5692203-3 (Version None)
Quarter: 2008Q2

REPORT INFORMATION
  Report Type: 
  Country: None (occurrence: None)
  Receive Date: 20080402
  Receipt Date: 20080401
  Transmission Date: 20081010
  Serious: Yes (Death)
  Sender: FDA-Public Use
  Company Number: D0056693A

PATIENT
  Age: 72 Year
  Sex: Female

DRUGS (1)
  1. AVANDAMET [Suspect]
     Indication: DIABETES MELLITUS
     Dosage: 1004MG TWICE PER DAY
     Route: 048
     Dates: start: 20080215, end: 20080319

REACTIONS (1)
  - MYOCARDIAL INFARCTION [None]
